FAERS Safety Report 14871250 (Version 1)
Quarter: 2018Q2

REPORT INFORMATION
  Report Type: Report from Study
  Country: GB (occurrence: GB)
  Receive Date: 20180509
  Receipt Date: 20180509
  Transmission Date: 20180711
  Serious: Yes (Hospitalization, Other)
  Sender: FDA-Public Use
  Company Number: GB-TEVA-2018-GB-889076

PATIENT
  Age: 59 Year
  Sex: Female

DRUGS (1)
  1. COPAXONE [Suspect]
     Active Substance: GLATIRAMER ACETATE
     Dosage: 40 MG/ML
     Route: 058
     Dates: start: 20170628, end: 20180417

REACTIONS (4)
  - Head injury [Unknown]
  - Syncope [Unknown]
  - Injection site reaction [Unknown]
  - Malaise [Unknown]

NARRATIVE: CASE EVENT DATE: 2018
